FAERS Safety Report 17424682 (Version 1)
Quarter: 2020Q1

REPORT INFORMATION
  Report Type: Spontaneous
  Country: US (occurrence: US)
  Receive Date: 20200217
  Receipt Date: 20200217
  Transmission Date: 20200409
  Serious: Yes (Death, Hospitalization, Other)
  Sender: FDA-Public Use
  Company Number: US-ALEXION PHARMACEUTICALS INC.-A201920318

PATIENT
  Age: 44 Year
  Sex: Female
  Weight: 89.25 kg

DRUGS (2)
  1. ULTOMIRIS [Suspect]
     Active Substance: RAVULIZUMAB-CWVZ
     Dosage: 2400 MG LOADING DOSE, UNK
     Route: 065
     Dates: start: 201912
  2. ULTOMIRIS [Suspect]
     Active Substance: RAVULIZUMAB-CWVZ
     Indication: ATYPICAL HAEMOLYTIC URAEMIC SYNDROME
     Dosage: UNK
     Route: 065
     Dates: start: 20191212

REACTIONS (5)
  - Infection [Fatal]
  - Sepsis [Fatal]
  - Condition aggravated [Fatal]
  - Influenza [Fatal]
  - Dialysis related complication [Fatal]

NARRATIVE: CASE EVENT DATE: 20191224
